FAERS Safety Report 17326674 (Version 1)
Quarter: 2020Q1

REPORT INFORMATION
  Report Type: Spontaneous
  Country: FR (occurrence: FR)
  Receive Date: 20200127
  Receipt Date: 20200127
  Transmission Date: 20200409
  Serious: Yes (Other)
  Sender: FDA-Public Use
  Company Number: NVSC2020FR013967

PATIENT
  Age: 60 Year
  Sex: Female

DRUGS (3)
  1. MEROPENEM ANHYDROUS [Suspect]
     Active Substance: MEROPENEM ANHYDROUS
     Indication: INFECTION
     Dosage: 3 G
     Route: 042
     Dates: start: 20190822, end: 20190916
  2. OCTREOTIDE. [Suspect]
     Active Substance: OCTREOTIDE
     Indication: PRODUCT USED FOR UNKNOWN INDICATION
     Dosage: 200 UG
     Route: 058
     Dates: start: 20190905, end: 20190916
  3. PARACETAMOL [Suspect]
     Active Substance: ACETAMINOPHEN
     Indication: PAIN
     Dosage: 1 G
     Route: 048
     Dates: start: 20190911, end: 20190916

REACTIONS (2)
  - Encephalopathy [Recovered/Resolved]
  - Liver disorder [Recovered/Resolved]

NARRATIVE: CASE EVENT DATE: 20190914
